FAERS Safety Report 6890028-4 (Version None)
Quarter: 2010Q3

REPORT INFORMATION
  Report Type: 
  Country: None (occurrence: None)
  Receive Date: 20100730
  Receipt Date: 20080710
  Transmission Date: 20110219
  Serious: No
  Sender: FDA-Public Use
  Company Number: US-PFIZER INC-2008058151

PATIENT
  Sex: Female
  Weight: 61.23 kg

DRUGS (1)
  1. LIPITOR [Suspect]
     Dates: start: 20080101

REACTIONS (2)
  - PRURITUS [None]
  - RASH [None]
